FAERS Safety Report 8103360-3 (Version None)
Quarter: 2011Q4

REPORT INFORMATION
  Report Type: 
  Country: None (occurrence: None)
  Receive Date: 20111222
  Receipt Date: 20111115
  Transmission Date: 20120403
  Serious: Yes (Hospitalization)
  Sender: FDA-Public Use
  Company Number: UTC-011361

PATIENT
  Age: 56 Year
  Sex: Female
  Weight: 119 kg

DRUGS (4)
  1. TYVASO [Suspect]
     Indication: PULMONARY ARTERIAL HYPERTENSION
     Dosage: 36 -54 MICROGRAMS  (4 IN 1 D), INHALATION
     Route: 055
     Dates: start: 20101111, end: 20111115
  2. TRACLEER [Concomitant]
  3. COUMADIN [Concomitant]
  4. ADCIRCA [Concomitant]

REACTIONS (4)
  - SYNCOPE [None]
  - TREATMENT NONCOMPLIANCE [None]
  - FLUID OVERLOAD [None]
  - DIZZINESS [None]
